FAERS Safety Report 4381388-7 (Version None)
Quarter: 2004Q2

REPORT INFORMATION
  Report Type: 
  Country: None (occurrence: None)
  Receive Date: 20040616
  Receipt Date: 20040607
  Transmission Date: 20050107
  Serious: Yes (Death)
  Sender: FDA-Public Use
  Company Number: 163-20785-04050449

PATIENT
  Age: 8 Year
  Sex: Male

DRUGS (2)
  1. THALOMID [Suspect]
     Indication: NEUROBLASTOMA
     Dosage: SEE IMAGE
     Route: 048
     Dates: end: 20040428
  2. THALOMID [Suspect]
     Indication: NEUROBLASTOMA
     Dosage: SEE IMAGE
     Route: 048
     Dates: start: 20031217

REACTIONS (4)
  - MALIGNANT NEOPLASM PROGRESSION [None]
  - NEUROBLASTOMA [None]
  - RECURRENT CANCER [None]
  - THERAPY NON-RESPONDER [None]
